FAERS Safety Report 9519709 (Version 1)
Quarter: 2013Q1

REPORT INFORMATION
  Report Type: Spontaneous
  Country: US (occurrence: None)
  Receive Date: 20130305
  Receipt Date: 20130305
  Transmission Date: 20140127
  Serious: Yes (Disabling)
  Sender: FDA-Public Use
  Company Number: 163-21880-12010922

PATIENT
  Age: 67 Year
  Sex: Male

DRUGS (5)
  1. REVLIMID (LENLIDOMIDE) (10 MILLIGRAM, CAPSULES) [Suspect]
     Indication: PRODUCT USED FOR UNKNOWN INDICATION
     Dosage: 10 MG, 1 IN 1 D, PO
     Route: 048
     Dates: start: 201110
  2. ASA (ACETYLSALICYLIC ACID) [Concomitant]
  3. PLAVIX (CLOPIDOGREL SULFATE) (UNKNOWN) [Concomitant]
  4. AMBIEN (ZOLPIDEM TARTRATE) (UNKNOWN) [Concomitant]
  5. LORTAB (VICODIN) (UNKNOWN) [Concomitant]

REACTIONS (2)
  - Dizziness [None]
  - Fall [None]
